FAERS Safety Report 7345379-6 (Version None)
Quarter: 2011Q1

REPORT INFORMATION
  Report Type: 
  Country: None (occurrence: None)
  Receive Date: 20110310
  Receipt Date: 20110224
  Transmission Date: 20110831
  Serious: Yes (Other)
  Sender: FDA-Public Use
  Company Number: PHHY2011NL15903

PATIENT
  Sex: Female

DRUGS (2)
  1. ZOMETA [Suspect]
     Indication: BREAST CANCER METASTATIC
     Dosage: 4MG/5ML PER 28 DAYS
     Dates: start: 20101202
  2. ZOMETA [Suspect]
     Dosage: 4MG/5ML PER 28 DAYS
     Dates: start: 20110126

REACTIONS (4)
  - MALAISE [None]
  - VIRAL TEST POSITIVE [None]
  - PNEUMONIA [None]
  - MYOSITIS [None]
